FAERS Safety Report 17894975 (Version 1)
Quarter: 2020Q2

REPORT INFORMATION
  Report Type: Spontaneous
  Country: GB (occurrence: GB)
  Receive Date: 20200615
  Receipt Date: 20200615
  Transmission Date: 20200714
  Serious: Yes (Other)
  Sender: FDA-Public Use
  Company Number: GB-TEVA-2020-GB-1247740

PATIENT
  Age: 67 Year
  Sex: Male
  Weight: 77 kg

DRUGS (15)
  1. VITAMIN D [Concomitant]
     Active Substance: VITAMIN D NOS
  2. MESALAZINE [Concomitant]
     Active Substance: MESALAMINE
     Dosage: 1G/100ML.
  3. HYDROMOL OINTMENT [Concomitant]
     Active Substance: PARAFFIN\WAX, EMULSIFYING
  4. FYBOGEL [Concomitant]
     Active Substance: PLANTAGO OVATA SEED
  5. PENTASA [Concomitant]
     Active Substance: MESALAMINE
     Dosage: 2 GRAM
  6. PROTOPIC [Concomitant]
     Active Substance: TACROLIMUS
     Dosage: 1 PERCENT
  7. TAMSULOSIN [Concomitant]
     Active Substance: TAMSULOSIN
  8. SALBUTAMOL [Concomitant]
     Active Substance: ALBUTEROL
     Dosage: 100 MICROGRAM
     Route: 055
  9. DERMOL [Concomitant]
     Active Substance: BENZALKONIUM CHLORIDE\CHLORHEXIDINE HYDROCHLORIDE\ISOPROPYL MYRISTATE\PARAFFIN
  10. RAMIPRIL. [Concomitant]
     Active Substance: RAMIPRIL
     Dosage: 10 MG
  11. INCRUSE ELLIPTA [Concomitant]
     Active Substance: UMECLIDINIUM BROMIDE
  12. MOMETASONE FUROATE. [Concomitant]
     Active Substance: MOMETASONE FUROATE
     Dosage: 0.1 PERCENT
  13. MULTIVITAMIN [Concomitant]
     Active Substance: VITAMINS
  14. SIMVASTATIN. [Suspect]
     Active Substance: SIMVASTATIN
     Indication: BLOOD CHOLESTEROL INCREASED
     Dosage: 40 MG
     Route: 048
     Dates: start: 20090126, end: 20140914
  15. ASCORBIC ACID. [Concomitant]
     Active Substance: ASCORBIC ACID

REACTIONS (1)
  - Pain in extremity [Recovered/Resolved]

NARRATIVE: CASE EVENT DATE: 20090301
